FAERS Safety Report 11797124 (Version 1)
Quarter: 2015Q4

REPORT INFORMATION
  Report Type: Spontaneous
  Country: US (occurrence: None)
  Receive Date: 20151202
  Receipt Date: 20151202
  Transmission Date: 20160305
  Serious: Yes (Other)
  Sender: FDA-Public Use
  Company Number: None

PATIENT
  Age: 20 Year
  Sex: Male

DRUGS (4)
  1. PAXIL [Concomitant]
     Active Substance: PAROXETINE HYDROCHLORIDE
  2. KLONOPIN [Suspect]
     Active Substance: CLONAZEPAM
     Indication: DRUG THERAPY
     Route: 048
     Dates: start: 20130101, end: 20151201
  3. BUSPAR [Concomitant]
     Active Substance: BUSPIRONE HYDROCHLORIDE
  4. MELATONIN [Concomitant]
     Active Substance: MELATONIN

REACTIONS (7)
  - Dizziness [None]
  - Thirst [None]
  - Insomnia [None]
  - Anxiety [None]
  - Peripheral coldness [None]
  - Rebound effect [None]
  - Flatulence [None]

NARRATIVE: CASE EVENT DATE: 20130101
